FAERS Safety Report 14453621 (Version 3)
Quarter: 2018Q3

REPORT INFORMATION
  Report Type: Spontaneous
  Country: NL (occurrence: NL)
  Receive Date: 20180129
  Receipt Date: 20180801
  Transmission Date: 20181010
  Serious: Yes (Hospitalization)
  Sender: FDA-Public Use
  Company Number: NL-TEVA-2018-NL-849363

PATIENT
  Age: 81 Year
  Sex: Female
  Weight: 60 kg

DRUGS (12)
  1. SPIRONOLACTONE. [Suspect]
     Active Substance: SPIRONOLACTONE
     Indication: CARDIAC FAILURE
     Dosage: 25 MILLIGRAM DAILY; 1X PER DAY 25 MILLIGRAM
     Route: 065
     Dates: start: 20171020, end: 20171129
  2. PANTOPRAZOL [Concomitant]
     Active Substance: PANTOPRAZOLE SODIUM
     Dosage: ONCE DAILY20 MG
  3. METOPROLOL. [Concomitant]
     Active Substance: METOPROLOL
     Dosage: ONCE DAILY 100 MG WITH REGULATED RELEASE (MGA)
  4. PRAVASTATINE [Concomitant]
     Active Substance: PRAVASTATIN
     Dosage: ONCE DAILY10 MG
  5. VITAMINE B COMPLEX [Concomitant]
     Active Substance: CYANOCOBALAMIN\PYRIDOXINE HYDROCHLORIDE\RIBOFLAVIN\SODIUM PANTOTHENATE\THIAMINE HYDROCHLORIDE\VITAMIN B COMPLEX
     Dosage: ONCE DAILY 1
  6. COLECALCIFEROL 50.000 IE [Concomitant]
     Dosage: 1 TIME A MONTH
  7. ZOLPIDEM [Concomitant]
     Active Substance: ZOLPIDEM\ZOLPIDEM TARTRATE
     Dosage: ONCE DAILY 1
  8. ACENOCOUMAROL [Concomitant]
     Active Substance: ACENOCOUMAROL
  9. BECLOMETASON/FORMOTEROL INHALATIE [Concomitant]
  10. FUROSEMIDE. [Concomitant]
     Active Substance: FUROSEMIDE
     Dosage: 1DD 20MG
  11. VALSARTAN. [Concomitant]
     Active Substance: VALSARTAN
     Dosage: 80 MILLIGRAM DAILY; ONCE DAILY 80 MG
  12. ISOSORBIDEMONONITRAAT ZN [Concomitant]

REACTIONS (3)
  - Dehydration [Recovered/Resolved]
  - Renal impairment [Recovered/Resolved]
  - Diarrhoea [Recovered/Resolved]

NARRATIVE: CASE EVENT DATE: 20171020
